FAERS Safety Report 7207527-8 (Version None)
Quarter: 2011Q1

REPORT INFORMATION
  Report Type: 
  Country: None (occurrence: None)
  Receive Date: 20110103
  Receipt Date: 20101222
  Transmission Date: 20110831
  Serious: Yes (Life-Threatening, Hospitalization, Other)
  Sender: FDA-Public Use
  Company Number: GB-JNJFOC-20100807180

PATIENT
  Age: 75 Year
  Sex: Female
  Weight: 65 kg

DRUGS (10)
  1. RANITIDINE [Concomitant]
     Route: 065
  2. REVLIMID [Interacting]
     Indication: MULTIPLE MYELOMA
     Route: 048
  3. BENDROFLUMETHIAZIDE [Interacting]
     Indication: PRODUCT USED FOR UNKNOWN INDICATION
  4. FLUCONAZOLE [Concomitant]
  5. FRAGMIN [Concomitant]
     Indication: ILL-DEFINED DISORDER
  6. ACYCLOVIR [Concomitant]
  7. COTRIM [Concomitant]
     Route: 065
  8. ALLOPURINOL [Concomitant]
     Indication: ILL-DEFINED DISORDER
     Route: 065
  9. DEXAMETHASONE [Concomitant]
     Indication: ILL-DEFINED DISORDER
  10. TRAMADOL HYDROCHLORIDE [Suspect]
     Indication: PAIN
     Route: 048

REACTIONS (2)
  - DRUG INTERACTION [None]
  - INAPPROPRIATE ANTIDIURETIC HORMONE SECRETION [None]
